FAERS Safety Report 9603704 (Version 3)
Quarter: 2013Q4

REPORT INFORMATION
  Report Type: Spontaneous
  Country: JP (occurrence: JP)
  Receive Date: 20131007
  Receipt Date: 20131014
  Transmission Date: 20140711
  Serious: Yes (Hospitalization)
  Sender: FDA-Public Use
  Company Number: JP-ABBVIE-13P-087-1136362-00

PATIENT
  Age: 24 Year
  Sex: Male
  Weight: 51 kg

DRUGS (17)
  1. HUMIRA [Suspect]
     Indication: RHEUMATOID ARTHRITIS
     Route: 058
     Dates: start: 20130424, end: 20130621
  2. METOLATE [Suspect]
     Indication: RHEUMATOID ARTHRITIS
     Dosage: 14 MG/WEEK
     Route: 048
     Dates: start: 20121220, end: 20130626
  3. METOLATE [Suspect]
     Dates: start: 20130730
  4. METOLATE [Suspect]
     Dates: start: 20130805
  5. METOLATE [Suspect]
     Dates: start: 20130830
  6. PREDNISOLONE [Concomitant]
     Indication: RHEUMATOID ARTHRITIS
  7. PREDNISOLONE [Concomitant]
     Dates: start: 20121214, end: 20130729
  8. PREDNISOLONE [Concomitant]
     Dates: start: 20130730
  9. ESOMEPRAZOLE MAGNESIUM [Concomitant]
     Indication: PROPHYLAXIS
     Dosage: QAM
     Dates: start: 20130412
  10. ESOMEPRAZOLE MAGNESIUM [Concomitant]
     Indication: ADVERSE REACTION
  11. FOLIC ACID [Concomitant]
     Indication: ADVERSE REACTION
     Route: 048
  12. FOLIC ACID [Concomitant]
     Indication: ADVERSE REACTION
  13. CELECOXIB [Concomitant]
     Indication: RHEUMATOID ARTHRITIS
     Dosage: IN THE MORNING AND EVENING
     Dates: start: 20130412
  14. RISEDRONATE [Concomitant]
     Indication: OSTEOPOROSIS PROPHYLAXIS
     Route: 048
     Dates: start: 20130412
  15. RHEUMATREX [Concomitant]
     Indication: RHEUMATOID ARTHRITIS
     Dosage: 8 MG/WEEK
     Route: 048
     Dates: start: 20130731, end: 20130804
  16. RHEUMATREX [Concomitant]
     Dosage: 12 MG/WEEK
     Dates: start: 20130805, end: 20130829
  17. RHEUMATREX [Concomitant]
     Dosage: 14 MG/WEEK
     Dates: start: 20130830

REACTIONS (3)
  - Pyrexia [Recovering/Resolving]
  - C-reactive protein increased [Recovering/Resolving]
  - Oropharyngeal pain [Recovering/Resolving]
